FAERS Safety Report 19080170 (Version 4)
Quarter: 2022Q2

REPORT INFORMATION
  Report Type: Spontaneous
  Country: ES (occurrence: ES)
  Receive Date: 20210331
  Receipt Date: 20220510
  Transmission Date: 20220720
  Serious: Yes (Other)
  Sender: FDA-Public Use
  Company Number: ES-ACCORD-219709

PATIENT
  Age: 79 Year
  Sex: Female

DRUGS (1)
  1. GEMCITABINE HYDROCHLORIDE [Suspect]
     Active Substance: GEMCITABINE HYDROCHLORIDE
     Indication: Angiosarcoma
     Dosage: UNK

REACTIONS (2)
  - Haematotoxicity [Unknown]
  - Off label use [Unknown]
